FAERS Safety Report 7661586-7 (Version None)
Quarter: 2011Q3

REPORT INFORMATION
  Report Type: 
  Country: None (occurrence: None)
  Receive Date: 20110805
  Receipt Date: 20110727
  Transmission Date: 20111222
  Serious: Yes (Hospitalization)
  Sender: FDA-Public Use
  Company Number: US-CELGENEUS-163-50794-10070364

PATIENT
  Sex: Female
  Weight: 86.3 kg

DRUGS (19)
  1. GRANISETRON [Concomitant]
     Dosage: 1 MILLIGRAM
     Route: 048
     Dates: start: 20100627
  2. ZOFRAN [Concomitant]
     Indication: PREMEDICATION
     Dosage: 4 MILLIGRAM
     Route: 041
     Dates: start: 20100625
  3. LOVENOX [Concomitant]
     Indication: PROPHYLAXIS
     Dosage: 40 MILLIGRAM
     Route: 041
     Dates: start: 20100626
  4. ABZENET [Concomitant]
     Indication: VOMITING
  5. SODIUM CHLORIDE [Concomitant]
     Indication: INTRAVENOUS CATHETER MANAGEMENT
     Route: 041
     Dates: start: 20100626
  6. TYLENOL PM [Concomitant]
     Indication: SLEEP DISORDER
     Route: 048
  7. ABRAXANE [Suspect]
     Dosage: 197 MILLIGRAM
     Route: 065
     Dates: end: 20100607
  8. NEXIUM [Concomitant]
     Indication: PROPHYLAXIS
     Dosage: 20 MILLIGRAM
     Route: 048
     Dates: start: 20100626
  9. ABRAXANE [Suspect]
     Dosage: 197 MILLIGRAM
     Route: 065
     Dates: start: 20100301
  10. KYTRIL [Concomitant]
     Dosage: 1 MILLIGRAM
     Route: 048
     Dates: start: 20100517, end: 20100623
  11. TYLENOL-500 [Concomitant]
     Indication: HEADACHE
     Route: 048
  12. VIDAZA [Suspect]
     Dosage: 200 MILLIGRAM
     Route: 065
     Dates: start: 20100222
  13. VIDAZA [Suspect]
     Dosage: 197 MILLIGRAM
     Route: 065
     Dates: end: 20100623
  14. PHENERGAN HCL [Concomitant]
     Indication: NAUSEA
     Route: 048
     Dates: start: 20100518
  15. PHENERGAN HCL [Concomitant]
     Indication: VOMITING
     Dosage: 25 MILLIGRAM
     Route: 041
     Dates: start: 20100627
  16. COLACE [Concomitant]
     Indication: CONSTIPATION
     Dosage: 200 MILLIGRAM
     Route: 041
     Dates: start: 20100121
  17. MIRALAX [Concomitant]
     Indication: CONSTIPATION
     Dosage: 17 GRAM
     Route: 048
     Dates: start: 20100101, end: 20100625
  18. ZOFRAN [Concomitant]
     Indication: NAUSEA
     Dosage: 4 MILLIGRAM
     Route: 048
     Dates: start: 20100601, end: 20100625
  19. ABZENET [Concomitant]
     Indication: NAUSEA
     Route: 048
     Dates: start: 20100518

REACTIONS (2)
  - PNEUMOTHORAX [None]
  - PAIN [None]
